FAERS Safety Report 4646370-0 (Version None)
Quarter: 2005Q2

REPORT INFORMATION
  Report Type: 
  Country: None (occurrence: None)
  Receive Date: 20050422
  Receipt Date: 20050408
  Transmission Date: 20051028
  Serious: Yes (Death, Hospitalization)
  Sender: FDA-Public Use
  Company Number: WAES 0410GBR00275

PATIENT
  Age: 70 Year
  Sex: Male

DRUGS (2)
  1. VIOXX [Suspect]
     Indication: NEOPLASM PROPHYLAXIS
     Dosage: 25 MG/DAILY PO
     Route: 048
     Dates: start: 20030723, end: 20040510
  2. ALLOPURINOL [Concomitant]

REACTIONS (23)
  - BLOOD BICARBONATE DECREASED [None]
  - BLOOD PH INCREASED [None]
  - CARCINOEMBRYONIC ANTIGEN INCREASED [None]
  - CARDIAC FAILURE [None]
  - CARDIO-RESPIRATORY ARREST [None]
  - DYSPNOEA [None]
  - HAEMATOCRIT DECREASED [None]
  - HAEMOGLOBIN DECREASED [None]
  - INFECTION [None]
  - LABORATORY TEST ABNORMAL [None]
  - MEAN CELL HAEMOGLOBIN CONCENTRATION DECREASED [None]
  - MEAN CELL HAEMOGLOBIN DECREASED [None]
  - MONOCYTE COUNT INCREASED [None]
  - NEUTROPHIL COUNT INCREASED [None]
  - OXYGEN SATURATION DECREASED [None]
  - PCO2 DECREASED [None]
  - PLEURAL EFFUSION [None]
  - PNEUMONIA [None]
  - POST PROCEDURAL COMPLICATION [None]
  - PROTHROMBIN TIME PROLONGED [None]
  - RED CELL DISTRIBUTION WIDTH INCREASED [None]
  - THERAPY NON-RESPONDER [None]
  - WHITE BLOOD CELL COUNT INCREASED [None]
